FAERS Safety Report 8911453 (Version 1)
Quarter: 2012Q4

REPORT INFORMATION
  Report Type: 
  Country: JP (occurrence: JP)
  Receive Date: 20121116
  Receipt Date: 20121116
  Transmission Date: 20130627
  Serious: Yes (Other)
  Sender: FDA-Public Use
  Company Number: JP-MPIJNJ-2012-08118

PATIENT

DRUGS (5)
  1. VELCADE [Suspect]
     Indication: MULTIPLE MYELOMA
     Dosage: 2.2 mg, UNK
     Route: 042
  2. THALIDOMIDE [Concomitant]
     Indication: MULTIPLE MYELOMA
     Dosage: 100 mg, UNK
     Route: 065
  3. LENALIDOMIDE [Concomitant]
     Indication: MULTIPLE MYELOMA
     Dosage: 25 mg, UNK
     Route: 065
  4. MELPHALAN [Concomitant]
     Indication: MULTIPLE MYELOMA
     Dosage: UNK
     Route: 065
  5. MELPHALAN [Concomitant]
     Dosage: 175 mg, UNK

REACTIONS (1)
  - Hepatitis B [Recovered/Resolved]
